FAERS Safety Report 7679833-4 (Version None)
Quarter: 2011Q3

REPORT INFORMATION
  Report Type: 
  Country: None (occurrence: None)
  Receive Date: 20110812
  Receipt Date: 20110712
  Transmission Date: 20111222
  Serious: Yes (Death, Hospitalization)
  Sender: FDA-Public Use
  Company Number: TW-CELGENEUS-153-50794-11071212

PATIENT
  Sex: Male
  Weight: 80 kg

DRUGS (11)
  1. GABAPENTIN [Concomitant]
     Dosage: 900 MILLIGRAM
     Route: 048
     Dates: start: 20110620, end: 20110709
  2. CYTARABINE [Concomitant]
     Indication: LEUKOCYTOSIS
     Route: 041
     Dates: start: 20110705, end: 20110707
  3. PHENYTOIN [Concomitant]
     Dosage: 250 MILLIGRAM
     Route: 041
     Dates: start: 20110710, end: 20110712
  4. HYDROXYUREA [Concomitant]
     Indication: LEUKOCYTOSIS
     Dosage: 1000 MILLIGRAM
     Route: 048
     Dates: start: 20110622
  5. MORPHINE [Concomitant]
     Dosage: 40 MILLIGRAM
     Route: 048
     Dates: start: 20110623, end: 20110627
  6. SENNOSIDE [Concomitant]
     Indication: CONSTIPATION PROPHYLAXIS
     Route: 048
     Dates: start: 20110629
  7. ALLOPURINOL [Concomitant]
     Indication: PROPHYLAXIS
     Dosage: 200 MILLIGRAM
     Route: 048
     Dates: start: 20110707, end: 20110711
  8. VIDAZA [Suspect]
     Dosage: 75 MILLIGRAM/SQ. METER
     Route: 058
     Dates: start: 20110706, end: 20110709
  9. PIPERACILLIN AND TAZOBACTAM [Concomitant]
     Indication: PROPHYLAXIS
     Dosage: 13.5 GRAM
     Route: 041
     Dates: start: 20110701, end: 20110706
  10. TRANEXAMIC ACID [Concomitant]
     Dosage: 750 MILLIGRAM
     Route: 041
     Dates: start: 20110620, end: 20110624
  11. CHLORZOXAZONE [Concomitant]
     Indication: BONE PAIN
     Dosage: 600 MILLIGRAM
     Route: 048
     Dates: start: 20110623, end: 20110709

REACTIONS (1)
  - CEREBRAL HAEMORRHAGE [None]
